FAERS Safety Report 4283854-1 (Version None)
Quarter: 2004Q1

REPORT INFORMATION
  Report Type: 
  Country: None (occurrence: None)
  Receive Date: 20040130
  Receipt Date: 20040120
  Transmission Date: 20041129
  Serious: Yes (Hospitalization)
  Sender: FDA-Public Use
  Company Number: HQWYE696115SEP03

PATIENT
  Age: 65 Year
  Sex: Male

DRUGS (3)
  1. AMIODARONE HCL [Suspect]
     Indication: CONGESTIVE CARDIOMYOPATHY
     Dosage: ORAL
     Route: 048
  2. XALATAN [Suspect]
     Indication: OCULAR HYPERTENSION
     Dosage: INTRAOCULAR
     Route: 031
  3. ZOVIRAX [Suspect]
     Indication: HERPES SIMPLEX OPHTHALMIC
     Dosage: INTRAOCULAR
     Route: 031

REACTIONS (3)
  - CONDITION AGGRAVATED [None]
  - HERPES SIMPLEX OPHTHALMIC [None]
  - UVEITIS [None]
